FAERS Safety Report 16491591 (Version 1)
Quarter: 2019Q3

REPORT INFORMATION
  Report Type: Spontaneous
  Country: US (occurrence: US)
  Receive Date: 20190627
  Receipt Date: 20190627
  Transmission Date: 20191004
  Serious: Yes (Life-Threatening, Hospitalization, Disabling)
  Sender: FDA-Public Use
  Company Number: None

PATIENT
  Age: 76 Year
  Sex: Female
  Weight: 89.7 kg

DRUGS (4)
  1. AVASTIN [Suspect]
     Active Substance: BEVACIZUMAB
  2. DOXORUBICIN 60MG/250ML [Concomitant]
     Dates: start: 20190411, end: 20190509
  3. AVASTIN [Suspect]
     Active Substance: BEVACIZUMAB
     Indication: OVARIAN CANCER STAGE III
     Dosage: ?          OTHER FREQUENCY:EVERY 2 WEEKS;?
     Route: 040
     Dates: start: 20190411, end: 20190509
  4. CARBOPLATIN 310MG/250ML [Concomitant]
     Dates: start: 20190411, end: 20190509

REACTIONS (5)
  - Device connection issue [None]
  - Enterocutaneous fistula [None]
  - Pleural effusion [None]
  - Fistula of small intestine [None]
  - Small intestinal perforation [None]

NARRATIVE: CASE EVENT DATE: 20190604
